FAERS Safety Report 14900112 (Version 1)
Quarter: 2018Q2

REPORT INFORMATION
  Report Type: Spontaneous
  Country: FR (occurrence: FR)
  Receive Date: 20180516
  Receipt Date: 20180516
  Transmission Date: 20180711
  Serious: Yes (Other)
  Sender: FDA-Public Use
  Company Number: FR-MERCK KGAA-2047880

PATIENT
  Age: 37 Year
  Sex: Male

DRUGS (1)
  1. NOVOTHYROX [Suspect]
     Active Substance: LEVOTHYROXINE SODIUM
     Indication: POST PROCEDURAL HYPOTHYROIDISM
     Dates: start: 201703, end: 201708

REACTIONS (21)
  - Bipolar disorder [None]
  - Insomnia [Recovered/Resolved]
  - Decreased interest [None]
  - Nervousness [Recovered/Resolved]
  - Mood swings [None]
  - Apathy [None]
  - Stress at work [None]
  - Bulimia nervosa [Recovered/Resolved]
  - Tension [None]
  - Impatience [None]
  - Fatigue [Recovered/Resolved]
  - Aggression [None]
  - Anger [None]
  - Negative thoughts [Recovered/Resolved]
  - Psychomotor hyperactivity [Recovered/Resolved]
  - Persecutory delusion [None]
  - Personal relationship issue [Recovered/Resolved]
  - Musculoskeletal stiffness [None]
  - Asthenia [None]
  - Social avoidant behaviour [Recovered/Resolved]
  - Mood altered [Recovered/Resolved]

NARRATIVE: CASE EVENT DATE: 201703
